FAERS Safety Report 8924942 (Version 1)
Quarter: 2012Q4

REPORT INFORMATION
  Report Type: 
  Country: US (occurrence: US)
  Receive Date: 20121126
  Receipt Date: 20121126
  Transmission Date: 20130627
  Serious: Yes (Hospitalization)
  Sender: FDA-Public Use
  Company Number: US-BAYER-2012-121869

PATIENT
  Age: 27 Year
  Sex: Female

DRUGS (3)
  1. YASMIN [Suspect]
     Indication: ACNE
  2. ACCUTANE [Concomitant]
     Indication: ACNE
     Dosage: Daily
     Dates: start: 20081003
  3. PRISTIQ [Concomitant]
     Indication: ANXIETY
     Dosage: 50 mg, daily
     Dates: start: 20081004

REACTIONS (2)
  - Deep vein thrombosis [None]
  - Pulmonary embolism [None]
